FAERS Safety Report 23313899 (Version 1)
Quarter: 2023Q4

REPORT INFORMATION
  Report Type: Other
  Country: US (occurrence: None)
  Receive Date: 20231219
  Receipt Date: 20231219
  Transmission Date: 20240109
  Serious: Yes (Other)
  Sender: FDA-Public Use
  Company Number: US-ROCHE-3474869

PATIENT
  Age: 60 Year
  Sex: Male
  Weight: 70.37 kg

DRUGS (15)
  1. RITUXAN [Suspect]
     Active Substance: RITUXIMAB
     Indication: Rheumatoid arthritis
     Dosage: ONE DOSE OVER 5 HOURS ;ONGOING: YES
     Route: 041
     Dates: start: 202309
  2. RITUXAN [Suspect]
     Active Substance: RITUXIMAB
     Indication: Systemic lupus erythematosus
     Route: 041
  3. RITUXAN [Suspect]
     Active Substance: RITUXIMAB
     Indication: Granulomatosis with polyangiitis
  4. RITUXAN [Suspect]
     Active Substance: RITUXIMAB
     Indication: Arteritis
  5. RITUXAN [Suspect]
     Active Substance: RITUXIMAB
     Indication: Connective tissue disorder
  6. CELLCEPT [Suspect]
     Active Substance: MYCOPHENOLATE MOFETIL
     Indication: Systemic lupus erythematosus
     Dosage: 3000MG PER DAY DAY ;ONGOING: YES
     Route: 048
  7. CELLCEPT [Suspect]
     Active Substance: MYCOPHENOLATE MOFETIL
     Indication: Joint stiffness
  8. CELLCEPT [Suspect]
     Active Substance: MYCOPHENOLATE MOFETIL
     Indication: Ill-defined disorder
  9. VITAMIN C [Concomitant]
     Active Substance: ASCORBIC ACID
  10. AMIODARONE [Concomitant]
     Active Substance: AMIODARONE
  11. PLAVIX [Concomitant]
     Active Substance: CLOPIDOGREL BISULFATE
  12. LASIX [Concomitant]
     Active Substance: FUROSEMIDE
  13. LOSARTAN [Concomitant]
     Active Substance: LOSARTAN
  14. MAGNESIUM OXIDE [Concomitant]
     Active Substance: MAGNESIUM OXIDE
  15. PREDNISONE [Concomitant]
     Active Substance: PREDNISONE

REACTIONS (5)
  - Infection [Recovered/Resolved]
  - Foot deformity [Unknown]
  - Joint dislocation [Not Recovered/Not Resolved]
  - Off label use [Unknown]
  - Off label use [Unknown]

NARRATIVE: CASE EVENT DATE: 20230901
